FAERS Safety Report 10153985 (Version 1)
Quarter: 2014Q2

REPORT INFORMATION
  Report Type: Spontaneous
  Country: US (occurrence: None)
  Receive Date: 20140502
  Receipt Date: 20140502
  Transmission Date: 20141212
  Serious: Yes (Hospitalization)
  Sender: FDA-Public Use
  Company Number: FK201401499

PATIENT
  Age: 78 Year
  Sex: Male

DRUGS (7)
  1. AMIODARONE HCL [Suspect]
     Indication: ATRIAL FIBRILLATION
     Dosage: INITIATED 5 MONTHS BEFORE ADMISSION
  2. WARFARIN (WARFARIN) [Suspect]
     Indication: PRODUCT USED FOR UNKNOWN INDICATION
  3. SIMIVASTATIN (SIMIVASTATIN) [Concomitant]
  4. METOPROLOL (METOPROLOL) [Concomitant]
  5. TAMSULOSIN (TAMSULOSIN) [Concomitant]
  6. FINASTERIDE (FINASTERIDE) [Concomitant]
  7. ASPIRIN (ACETYLSALICYLIC ACID) [Concomitant]

REACTIONS (11)
  - Myxoedema coma [None]
  - Drug interaction [None]
  - Lip haemorrhage [None]
  - Lip injury [None]
  - Bradycardia [None]
  - Hypothermia [None]
  - Abdominal distension [None]
  - International normalised ratio increased [None]
  - Unresponsive to stimuli [None]
  - Cardio-respiratory arrest [None]
  - Pericardial effusion [None]
